FAERS Safety Report 11176507 (Version 5)
Quarter: 2016Q2

REPORT INFORMATION
  Report Type: Spontaneous
  Country: US (occurrence: US)
  Receive Date: 20150610
  Receipt Date: 20160614
  Transmission Date: 20160815
  Serious: Yes (Hospitalization, Other)
  Sender: FDA-Public Use
  Company Number: US-ASTRAZENECA-2015SE52383

PATIENT
  Age: 602 Month
  Sex: Female
  Weight: 82.5 kg

DRUGS (20)
  1. LYNPARZA [Suspect]
     Active Substance: OLAPARIB
     Indication: OVARIAN CANCER
     Route: 048
     Dates: start: 20150529
  2. LYNPARZA [Suspect]
     Active Substance: OLAPARIB
     Indication: OVARIAN CANCER
     Route: 048
     Dates: start: 20150410, end: 20150521
  3. LYNPARZA [Suspect]
     Active Substance: OLAPARIB
     Indication: BRCA1 GENE MUTATION
     Route: 048
     Dates: start: 201504, end: 20150524
  4. GABAPENTIN. [Concomitant]
     Active Substance: GABAPENTIN
     Route: 048
     Dates: start: 20150529
  5. LYNPARZA [Suspect]
     Active Substance: OLAPARIB
     Indication: BRCA1 GENE MUTATION
     Route: 048
     Dates: start: 20150410, end: 20150521
  6. LYNPARZA [Suspect]
     Active Substance: OLAPARIB
     Indication: BRCA1 GENE MUTATION
     Route: 048
     Dates: start: 20150529
  7. LYNPARZA [Suspect]
     Active Substance: OLAPARIB
     Indication: OVARIAN CANCER
     Dosage: 50 MG,8 CAPSULE TWO TIME A DAY
     Route: 048
     Dates: start: 20150611
  8. LISINOPRIL. [Suspect]
     Active Substance: LISINOPRIL
     Indication: BLOOD PRESSURE ABNORMAL
     Route: 048
     Dates: start: 20150529
  9. LYNPARZA [Suspect]
     Active Substance: OLAPARIB
     Indication: BRCA1 GENE MUTATION
     Dosage: 50 MG,8 CAPSULE TWO TIME A DAY
     Route: 048
     Dates: start: 20150611
  10. XANAX [Concomitant]
     Active Substance: ALPRAZOLAM
     Indication: ANXIETY
     Route: 048
  11. LYNPARZA [Suspect]
     Active Substance: OLAPARIB
     Indication: OVARIAN CANCER
     Route: 048
     Dates: start: 201504, end: 20150524
  12. LISINOPRIL. [Suspect]
     Active Substance: LISINOPRIL
     Indication: BLOOD PRESSURE ABNORMAL
     Route: 048
     Dates: start: 20150611
  13. PREDNISONE. [Concomitant]
     Active Substance: PREDNISONE
     Dosage: 5TABS IN /3 DAYS
     Route: 048
     Dates: start: 20150529
  14. PREDNISONE. [Concomitant]
     Active Substance: PREDNISONE
     Dosage: 3TABS IN /3 DAYS
     Route: 048
     Dates: start: 20150529
  15. PREDNISONE. [Concomitant]
     Active Substance: PREDNISONE
     Dosage: 2TABS IN /3 DAYS
     Route: 048
     Dates: start: 20150529
  16. PREDNISONE. [Concomitant]
     Active Substance: PREDNISONE
     Dosage: 1TABS IN /3 DAYS
     Route: 048
     Dates: start: 20150529
  17. LABETALOL [Concomitant]
     Active Substance: LABETALOL\LABETALOL HYDROCHLORIDE
     Route: 048
     Dates: start: 20150529
  18. PRILOSEC [Concomitant]
     Active Substance: OMEPRAZOLE MAGNESIUM
     Route: 048
     Dates: start: 20150611
  19. PREDNISONE. [Concomitant]
     Active Substance: PREDNISONE
     Dosage: 6 TABS IN /3 DAYS
     Route: 048
     Dates: start: 20150529
  20. XANAX [Concomitant]
     Active Substance: ALPRAZOLAM
     Indication: NERVOUSNESS
     Route: 048

REACTIONS (14)
  - Lymphadenopathy [Unknown]
  - Condition aggravated [Unknown]
  - Peripheral swelling [Unknown]
  - Anxiety [Unknown]
  - Abdominal discomfort [Unknown]
  - Malaise [Unknown]
  - Mobility decreased [Unknown]
  - Dyspnoea exertional [Unknown]
  - Asthenia [Unknown]
  - Haemolytic anaemia [Recovered/Resolved]
  - Drug intolerance [Unknown]
  - Limb discomfort [Unknown]
  - Dizziness [Unknown]
  - Hypotension [Unknown]

NARRATIVE: CASE EVENT DATE: 201505
